FAERS Safety Report 8610227-0 (Version None)
Quarter: 2012Q3

REPORT INFORMATION
  Report Type: 
  Country: None (occurrence: None)
  Receive Date: 20120822
  Receipt Date: 20120725
  Transmission Date: 20120928
  Serious: Yes (Hospitalization)
  Sender: FDA-Public Use
  Company Number: US-BRISTOL-MYERS SQUIBB COMPANY-16529687

PATIENT
  Age: 51 Year
  Sex: Female

DRUGS (8)
  1. TEMAZEPAM [Concomitant]
     Dates: start: 20111207
  2. BENZTROPINE MESYLATE [Concomitant]
     Dates: start: 20111117
  3. AMLODIPINE [Concomitant]
     Dates: start: 20111117
  4. PLAVIX [Concomitant]
     Dates: start: 20111207
  5. ARIPIPRAZOLE [Suspect]
     Indication: SCHIZOPHRENIA
     Dosage: IM DEPOT ON 05APR12
     Route: 030
     Dates: start: 20120202, end: 20120408
  6. METOPROLOL TARTRATE [Concomitant]
     Dates: start: 20111117
  7. ATIVAN [Concomitant]
     Dates: start: 20111117
  8. ASPIRIN [Concomitant]
     Dates: start: 20111117

REACTIONS (1)
  - SCHIZOPHRENIA [None]
